FAERS Safety Report 13466080 (Version 8)
Quarter: 2018Q1

REPORT INFORMATION
  Report Type: Spontaneous
  Country: US (occurrence: US)
  Receive Date: 20170421
  Receipt Date: 20180329
  Transmission Date: 20180508
  Serious: Yes (Hospitalization, Other)
  Sender: FDA-Public Use
  Company Number: US-PFIZER INC-2017171387

PATIENT
  Age: 74 Year
  Sex: Female
  Weight: 96.6 kg

DRUGS (6)
  1. IBRANCE [Suspect]
     Active Substance: PALBOCICLIB
     Dosage: 125 MG, CYCLIC (D1- D21 Q28 DAYS)
     Route: 048
  2. IBRANCE [Suspect]
     Active Substance: PALBOCICLIB
     Dosage: 125 MG, CYCLIC (D1-21 Q28 DAYS)
     Route: 048
  3. IBRANCE [Suspect]
     Active Substance: PALBOCICLIB
     Dosage: 125 MG, CYCLIC, (DAYS 1-21 Q28 DAYS)
     Route: 048
  4. IBRANCE [Suspect]
     Active Substance: PALBOCICLIB
     Indication: BREAST CANCER METASTATIC
     Dosage: 125 MG, CYCLIC (D1- D21 Q28 D)
     Route: 048
     Dates: start: 20170404
  5. IBRANCE [Suspect]
     Active Substance: PALBOCICLIB
     Dosage: 125 MG, CYCLIC, (1-21 Q28 DAYS)
     Route: 048
     Dates: start: 20170404
  6. IBRANCE [Suspect]
     Active Substance: PALBOCICLIB
     Dosage: 125 MG, CYCLIC, (DAYS 1-21 Q28 DAYS)
     Route: 048

REACTIONS (9)
  - Urinary tract infection [Unknown]
  - Migraine [Unknown]
  - Wrong technique in product usage process [Unknown]
  - Alopecia [Unknown]
  - Rectal haemorrhage [Recovering/Resolving]
  - Pyrexia [Unknown]
  - Nephrolithiasis [Unknown]
  - Diarrhoea [Not Recovered/Not Resolved]
  - Abdominal pain upper [Not Recovered/Not Resolved]

NARRATIVE: CASE EVENT DATE: 2017
